FAERS Safety Report 10853612 (Version 1)
Quarter: 2015Q1

REPORT INFORMATION
  Report Type: Spontaneous
  Country: BR (occurrence: BR)
  Receive Date: 20150223
  Receipt Date: 20150223
  Transmission Date: 20150721
  Serious: Yes (Hospitalization)
  Sender: FDA-Public Use
  Company Number: BR-JNJFOC-20150211043

PATIENT
  Age: 63 Year
  Sex: Female

DRUGS (4)
  1. DAFLON [Concomitant]
     Active Substance: DIOSMIN\HESPERIDIN
     Indication: ANGIOPATHY
     Route: 048
     Dates: start: 20150202
  2. XARELTO [Suspect]
     Active Substance: RIVAROXABAN
     Indication: EMBOLISM VENOUS
     Route: 048
  3. XARELTO [Suspect]
     Active Substance: RIVAROXABAN
     Indication: VENOUS THROMBOSIS
     Route: 048
  4. THYROID [Concomitant]
     Active Substance: LEVOTHYROXINE\LIOTHYRONINE
     Indication: THYROID DISORDER
     Route: 048
     Dates: start: 2005

REACTIONS (3)
  - Limb injury [Recovered/Resolved]
  - Fall [Recovered/Resolved]
  - Thrombophlebitis [Not Recovered/Not Resolved]

NARRATIVE: CASE EVENT DATE: 20141018
